FAERS Safety Report 9565307 (Version 1)
Quarter: 2013Q3

REPORT INFORMATION
  Report Type: Spontaneous
  Country: FR (occurrence: FR)
  Receive Date: 20130930
  Receipt Date: 20130930
  Transmission Date: 20140515
  Serious: Yes (Hospitalization)
  Sender: FDA-Public Use
  Company Number: FR-ASTRAZENECA-2013SE71115

PATIENT
  Age: 8439 Day
  Sex: Male

DRUGS (4)
  1. DIPRIVAN [Suspect]
     Indication: SEDATION
     Dosage: 100MG/HOURS
     Route: 042
     Dates: start: 20130803, end: 20130806
  2. DIPRIVAN [Suspect]
     Indication: SEDATION
     Dosage: 100MG/HOURS
     Route: 042
     Dates: start: 20130807, end: 20130809
  3. SALBUTAMOL [Concomitant]
     Indication: ASTHMA
     Dosage: 1 TO 4 MG/HOURS
     Route: 042
     Dates: start: 20130804, end: 20130806
  4. METHYLPREDNISOLONE [Concomitant]
     Route: 042
     Dates: start: 20130803, end: 20130811

REACTIONS (1)
  - Rhabdomyolysis [Recovered/Resolved]
